FAERS Safety Report 10957207 (Version 2)
Quarter: 2015Q2

REPORT INFORMATION
  Report Type: Spontaneous
  Country: US (occurrence: NO)
  Receive Date: 20150326
  Receipt Date: 20150406
  Transmission Date: 20150821
  Serious: Yes (Hospitalization, Other)
  Sender: FDA-Public Use
  Company Number: NO-AMGEN-NORCT2015028471

PATIENT
  Age: 43 Year
  Sex: Male

DRUGS (6)
  1. ALLOPURINOL. [Concomitant]
     Active Substance: ALLOPURINOL
     Dosage: UNK
     Route: 048
  2. ACETAMINOPHEN W/DEXTROPROPOXYPHENE [Concomitant]
     Dosage: UNK
  3. OMEPRAZOLE. [Concomitant]
     Active Substance: OMEPRAZOLE
     Dosage: UNK
     Route: 048
  4. PROBENECID. [Concomitant]
     Active Substance: PROBENECID
     Dosage: UNK
     Route: 048
  5. ENBREL [Suspect]
     Active Substance: ETANERCEPT
     Indication: RHEUMATOID ARTHRITIS
     Dosage: 50.0 MG, 1X/WK
     Route: 058
     Dates: start: 19991201, end: 20000217
  6. PREDNISOLONE. [Concomitant]
     Active Substance: PREDNISOLONE
     Dosage: UNK
     Route: 048

REACTIONS (6)
  - Pruritus [Unknown]
  - Headache [Unknown]
  - Sensory loss [Unknown]
  - Demyelination [Unknown]
  - Papilloedema [Not Recovered/Not Resolved]
  - Optic neuritis [Not Recovered/Not Resolved]

NARRATIVE: CASE EVENT DATE: 199912
